FAERS Safety Report 25182982 (Version 2)
Quarter: 2025Q2

REPORT INFORMATION
  Report Type: Spontaneous
  Country: IT (occurrence: IT)
  Receive Date: 20250410
  Receipt Date: 20250625
  Transmission Date: 20250716
  Serious: Yes (Other)
  Sender: CSL BEHRING
  Company Number: IT-BEH-2025201403

PATIENT
  Age: 34 Year
  Sex: Male

DRUGS (9)
  1. HUMAN IMMUNOGLOBULIN G [Suspect]
     Active Substance: HUMAN IMMUNOGLOBULIN G
     Indication: Parvovirus B19 infection
     Route: 042
  2. HUMAN IMMUNOGLOBULIN G [Suspect]
     Active Substance: HUMAN IMMUNOGLOBULIN G
     Route: 042
  3. HUMAN IMMUNOGLOBULIN G [Suspect]
     Active Substance: HUMAN IMMUNOGLOBULIN G
     Dosage: WEEKLY INFUSIONS
     Route: 042
  4. HUMAN IMMUNOGLOBULIN G [Suspect]
     Active Substance: HUMAN IMMUNOGLOBULIN G
     Dosage: MONTHLY INFUSIONS
     Route: 042
  5. RITUXIMAB [Concomitant]
     Active Substance: RITUXIMAB
  6. MYCOPHENOLIC ACID [Concomitant]
     Active Substance: MYCOPHENOLIC ACID
     Dosage: 750 MG TWICE A DAY
  7. TACROLIMUS [Concomitant]
     Active Substance: TACROLIMUS
  8. BASILIXIMAB [Concomitant]
     Active Substance: BASILIXIMAB
  9. EVEROLIMUS [Concomitant]
     Active Substance: EVEROLIMUS

REACTIONS (3)
  - Type III immune complex mediated reaction [Unknown]
  - Rash [Unknown]
  - Off label use [Unknown]
